FAERS Safety Report 6730197-X (Version None)
Quarter: 2010Q2

REPORT INFORMATION
  Report Type: 
  Country: None (occurrence: None)
  Receive Date: 20100518
  Receipt Date: 20100510
  Transmission Date: 20101027
  Serious: Yes (Death)
  Sender: FDA-Public Use
  Company Number: US-GENENTECH-293752

PATIENT
  Sex: Female
  Weight: 114.4 kg

DRUGS (2)
  1. AVASTIN [Suspect]
     Indication: COLON CANCER METASTATIC
     Dosage: 5 MG/KG, Q2W
     Route: 042
  2. CAMPTOSAR [Suspect]
     Indication: COLON CANCER METASTATIC

REACTIONS (2)
  - BLOOD BILIRUBIN INCREASED [None]
  - DISEASE PROGRESSION [None]
